FAERS Safety Report 7101476-1 (Version None)
Quarter: 2010Q4

REPORT INFORMATION
  Report Type: 
  Country: None (occurrence: None)
  Receive Date: 20101115
  Receipt Date: 20101103
  Transmission Date: 20110411
  Serious: Yes (Hospitalization, Other)
  Sender: FDA-Public Use
  Company Number: PHFR2010GB01102

PATIENT
  Sex: Male

DRUGS (5)
  1. CLOZARIL [Suspect]
     Indication: PSYCHOTIC DISORDER
     Dosage: 12.5 MG
     Route: 048
  2. CLOZARIL [Suspect]
     Dosage: 50MG/DAY
     Route: 048
     Dates: start: 20100601
  3. CLOZARIL [Suspect]
     Dosage: 25 MG
     Route: 048
     Dates: end: 20100629
  4. FRAXIPARIN [Concomitant]
  5. SINEMET [Concomitant]
     Dosage: 1/2 DOSE

REACTIONS (10)
  - ALANINE AMINOTRANSFERASE DECREASED [None]
  - C-REACTIVE PROTEIN INCREASED [None]
  - EOSINOPHILIA [None]
  - HAEMOGLOBIN DECREASED [None]
  - HALLUCINATION [None]
  - NEUTROPENIA [None]
  - NEUTROPHIL COUNT DECREASED [None]
  - NEUTROPHIL COUNT INCREASED [None]
  - RED BLOOD CELL COUNT DECREASED [None]
  - RED BLOOD CELL SEDIMENTATION RATE INCREASED [None]
